FAERS Safety Report 4360522-9 (Version None)
Quarter: 2004Q2

REPORT INFORMATION
  Report Type: 
  Country: None (occurrence: None)
  Receive Date: 20040519
  Receipt Date: 20040102
  Transmission Date: 20050107
  Serious: Yes (Hospitalization)
  Sender: FDA-Public Use
  Company Number: US-GLAXOSMITHKLINE-A0491574A

PATIENT
  Age: 63 Year
  Sex: Female

DRUGS (10)
  1. AVANDIA [Suspect]
     Dosage: 8MG PER DAY
     Route: 048
     Dates: start: 20000201, end: 20020401
  2. HUMULIN N [Suspect]
     Dosage: 40UNIT IN THE MORNING
     Route: 058
  3. HUMULIN N [Suspect]
     Dosage: 35UNIT AT NIGHT
     Route: 058
  4. SYNTHROID [Concomitant]
     Indication: HYPOTHYROIDISM
     Dosage: .15MG PER DAY
  5. LIPITOR [Concomitant]
     Dosage: 10MG PER DAY
     Route: 048
  6. DITROPAN [Concomitant]
     Indication: URINARY INCONTINENCE
     Dosage: 5MG PER DAY
     Route: 048
  7. CELEXA [Concomitant]
     Indication: DEPRESSION
     Dosage: 20MG PER DAY
     Route: 048
  8. FUROSEMIDE [Concomitant]
  9. OXYBUTYNIN [Concomitant]
  10. NAPROXEN [Concomitant]

REACTIONS (11)
  - CARDIAC FAILURE CONGESTIVE [None]
  - COUGH [None]
  - DRUG INTERACTION [None]
  - DYSPNOEA [None]
  - DYSPNOEA EXERTIONAL [None]
  - EMPYEMA [None]
  - HEADACHE [None]
  - OEDEMA PERIPHERAL [None]
  - PLEURAL EFFUSION [None]
  - PLEURITIC PAIN [None]
  - PYREXIA [None]
